FAERS Safety Report 21369644 (Version 1)
Quarter: 2022Q3

REPORT INFORMATION
  Report Type: Spontaneous
  Country: US (occurrence: None)
  Receive Date: 20220922
  Receipt Date: 20220922
  Transmission Date: 20221026
  Serious: Yes (Hospitalization)
  Sender: FDA-Public Use
  Company Number: None

PATIENT
  Age: 69 Year
  Sex: Male
  Weight: 58.6 kg

DRUGS (8)
  1. PACLITAXEL [Suspect]
     Active Substance: PACLITAXEL
     Indication: Squamous cell carcinoma of the hypopharynx
     Dosage: OTHER FREQUENCY : Q3WEEK;?
     Route: 041
     Dates: start: 20220822, end: 20220913
  2. DEXAMETHASONE [Concomitant]
     Active Substance: DEXAMETHASONE
     Dates: start: 20220822, end: 20220913
  3. DIPHENHYDRAMINE [Concomitant]
     Active Substance: DIPHENHYDRAMINE
     Dates: start: 20220822, end: 20220913
  4. FAMOTIDINE [Concomitant]
     Active Substance: FAMOTIDINE
     Dates: start: 20220822, end: 20220913
  5. FOSAPREPITANT [Concomitant]
     Active Substance: FOSAPREPITANT
     Dates: start: 20220822, end: 20220913
  6. PALONOSETRON [Concomitant]
     Active Substance: PALONOSETRON
     Dates: start: 20220822, end: 20220913
  7. CARBOPLATIN [Concomitant]
     Active Substance: CARBOPLATIN
     Dates: start: 20220822, end: 20220913
  8. PEMBROLIZUMAB [Concomitant]
     Active Substance: PEMBROLIZUMAB
     Dates: start: 20220822, end: 20220913

REACTIONS (5)
  - Infusion related reaction [None]
  - Increased bronchial secretion [None]
  - Tracheostomy [None]
  - Oxygen saturation decreased [None]
  - Therapy interrupted [None]

NARRATIVE: CASE EVENT DATE: 20220913
